FAERS Safety Report 17109033 (Version 1)
Quarter: 2019Q4

REPORT INFORMATION
  Report Type: Spontaneous
  Country: HR (occurrence: HR)
  Receive Date: 20191204
  Receipt Date: 20191204
  Transmission Date: 20200122
  Serious: Yes (Other)
  Sender: FDA-Public Use
  Company Number: HR-TEVA-2019-HR-1145901

PATIENT
  Sex: Female

DRUGS (3)
  1. OLANDIX [Suspect]
     Active Substance: OLANZAPINE
     Dosage: TABLETS, TONGUE SOLUBLE; 350 MG
     Route: 048
     Dates: start: 20190928, end: 20190928
  2. NOVOMIX [Suspect]
     Active Substance: INSULIN ASPART
     Dosage: TWICE GIVEN NOVOMIX 30
     Route: 065
     Dates: start: 20190928, end: 20190928
  3. DIAZEPAM. [Suspect]
     Active Substance: DIAZEPAM
     Dosage: 5 MG BLISTER
     Route: 048
     Dates: start: 20190928, end: 20190928

REACTIONS (4)
  - Somnolence [Unknown]
  - Suicide attempt [Unknown]
  - Sluggishness [Unknown]
  - Intentional overdose [Unknown]

NARRATIVE: CASE EVENT DATE: 20190928
